FAERS Safety Report 8662808 (Version 4)
Quarter: 2014Q3

REPORT INFORMATION
  Report Type: Spontaneous
  Country: US (occurrence: US)
  Receive Date: 20120712
  Receipt Date: 20140728
  Transmission Date: 20150326
  Serious: Yes (Hospitalization)
  Sender: FDA-Public Use
  Company Number: US-009507513-2012SP011808

PATIENT
  Sex: Female
  Weight: 90.72 kg

DRUGS (2)
  1. NUVARING [Suspect]
     Active Substance: ETHINYL ESTRADIOL\ETONOGESTREL
     Indication: MENSTRUATION IRREGULAR
     Dosage: 0.12-0.015 MG/24 HRS
     Route: 067
     Dates: start: 20091005, end: 201003
  2. NUVARING [Suspect]
     Active Substance: ETHINYL ESTRADIOL\ETONOGESTREL
     Indication: CONTRACEPTION

REACTIONS (7)
  - Lymphadenopathy [Unknown]
  - Migraine [Unknown]
  - Emotional disorder [Unknown]
  - Embolism arterial [Unknown]
  - Carpal tunnel syndrome [Unknown]
  - Asthma [Unknown]
  - Transverse sinus thrombosis [Recovered/Resolved]

NARRATIVE: CASE EVENT DATE: 20100306
